FAERS Safety Report 19786257 (Version 1)
Quarter: 2021Q3

REPORT INFORMATION
  Report Type: Spontaneous
  Country: DE (occurrence: DE)
  Receive Date: 20210903
  Receipt Date: 20210903
  Transmission Date: 20211014
  Serious: Yes (Other)
  Sender: FDA-Public Use
  Company Number: DE-PFIZER INC-202101086511

PATIENT
  Age: 51 Year

DRUGS (6)
  1. LETROZOL [Suspect]
     Active Substance: LETROZOLE
  2. DENOSUMAB [Suspect]
     Active Substance: DENOSUMAB
  3. PALBOCICLIB [Suspect]
     Active Substance: PALBOCICLIB
  4. EXEMESTANE. [Suspect]
     Active Substance: EXEMESTANE
     Dosage: UNK
     Dates: start: 202102
  5. AFINITOR [Suspect]
     Active Substance: EVEROLIMUS
     Dosage: UNK
     Dates: start: 202102
  6. ZOMETA [Suspect]
     Active Substance: ZOLEDRONIC ACID
     Dosage: UNK

REACTIONS (3)
  - Neoplasm progression [Unknown]
  - Renal impairment [Unknown]
  - Smear cervix abnormal [Unknown]
